FAERS Safety Report 22818682 (Version 3)
Quarter: 2024Q3

REPORT INFORMATION
  Report Type: Report from Study
  Country: US (occurrence: US)
  Receive Date: 20230814
  Receipt Date: 20240827
  Transmission Date: 20241017
  Serious: No
  Sender: NOVARTIS
  Company Number: US-SANDOZ-SDZ2023US013211

PATIENT
  Age: 59 Year
  Sex: Male

DRUGS (2)
  1. ENTRESTO [Suspect]
     Active Substance: SACUBITRIL\VALSARTAN
     Indication: Product used for unknown indication
     Dosage: 97/103 MG, BID
     Route: 065
     Dates: end: 202303
  2. FUROSEMIDE [Suspect]
     Active Substance: FUROSEMIDE
     Indication: Product used for unknown indication
     Dosage: UNK
     Route: 065
     Dates: start: 20230210, end: 202303

REACTIONS (2)
  - Throat clearing [Unknown]
  - Asthenia [Recovering/Resolving]

NARRATIVE: CASE EVENT DATE: 20230501
